FAERS Safety Report 7271545-4 (Version None)
Quarter: 2011Q1

REPORT INFORMATION
  Report Type: 
  Country: None (occurrence: None)
  Receive Date: 20110128
  Receipt Date: 20110128
  Transmission Date: 20110831
  Serious: Yes (Hospitalization)
  Sender: FDA-Public Use
  Company Number: None

PATIENT
  Sex: Male
  Weight: 87.9978 kg

DRUGS (1)
  1. DIVALPROEX SODIUM EXTENDED RELEASE [Suspect]
     Indication: CONVULSION
     Dosage: 1500 MG AT BEDTIME PO
     Route: 048
     Dates: start: 20101211, end: 20110117

REACTIONS (3)
  - PRODUCT SUBSTITUTION ISSUE [None]
  - DRUG LEVEL BELOW THERAPEUTIC [None]
  - CONVULSION [None]
